FAERS Safety Report 11037148 (Version 1)
Quarter: 2015Q2

REPORT INFORMATION
  Report Type: Spontaneous
  Country: JP (occurrence: None)
  Receive Date: 20150414
  Receipt Date: 20150414
  Transmission Date: 20150821
  Serious: Yes (Disabling, Other)
  Sender: FDA-Public Use
  Company Number: 2821726

PATIENT
  Age: 73 Year
  Sex: Female
  Weight: 41.3 kg

DRUGS (12)
  1. LACTATED RINGERS [Concomitant]
     Active Substance: CALCIUM CHLORIDE\POTASSIUM CHLORIDE\SODIUM CHLORIDE\SODIUM LACTATE
  2. TRANEXAMIC ACID. [Concomitant]
     Active Substance: TRANEXAMIC ACID
  3. ATROPINE SULFATE. [Concomitant]
     Active Substance: ATROPINE SULFATE
  4. PETHIDINE HYDROCHLORIDE [Concomitant]
     Active Substance: MEPERIDINE
  5. ADRENALINE [Concomitant]
     Active Substance: EPINEPHRINE
  6. CARBAZOCHROME SODIUM SULFONATE [Concomitant]
     Active Substance: CARBAZOCHROME SODIUM SULFONATE
  7. DOPAMINE HYDROCHLORIDE. [Concomitant]
     Active Substance: DOPAMINE HYDROCHLORIDE
  8. PHENYLEPHRINE HYDROCHLORIDE. [Concomitant]
     Active Substance: PHENYLEPHRINE HYDROCHLORIDE
  9. LANSOPRAZOLE. [Concomitant]
     Active Substance: LANSOPRAZOLE
  10. DEXMEDETOMIDINE HYDROCHLORIDE) [Suspect]
     Active Substance: DEXMEDETOMIDINE HYDROCHLORIDE
     Indication: SEDATION
     Dosage: 1 OR 2 IN 1 DAY
     Route: 041
     Dates: start: 20140821, end: 20140821
  11. PIPERACILLIN SODIUM W/TRAZOBACTAM SODIUM [Concomitant]
  12. NOREPINEPHRINE [Concomitant]
     Active Substance: NOREPINEPHRINE\NOREPINEPHRINE BITARTRATE

REACTIONS (12)
  - Computerised tomogram head abnormal [None]
  - Respiratory depression [None]
  - Bradycardia [None]
  - Electrocardiogram ST-T change [None]
  - Hypoxic-ischaemic encephalopathy [None]
  - Cardiac arrest [None]
  - Procedural haemorrhage [None]
  - Stress cardiomyopathy [None]
  - Blood pressure decreased [None]
  - Cardiomyopathy [None]
  - Pulseless electrical activity [None]
  - Sarcopenia [None]

NARRATIVE: CASE EVENT DATE: 20140821
